FAERS Safety Report 4759835-8 (Version None)
Quarter: 2005Q3

REPORT INFORMATION
  Report Type: 
  Country: None (occurrence: None)
  Receive Date: 20050831
  Receipt Date: 20050811
  Transmission Date: 20060218
  Serious: Yes (Other)
  Sender: FDA-Public Use
  Company Number: USA0508105358

PATIENT
  Age: 63 Year
  Sex: Female

DRUGS (1)
  1. CYMBALTA [Suspect]
     Indication: DEPRESSION
     Dosage: 60 MG DAY

REACTIONS (3)
  - DIALYSIS [None]
  - DIARRHOEA [None]
  - RENAL FAILURE [None]
